FAERS Safety Report 12199348 (Version 1)
Quarter: 2016Q1

REPORT INFORMATION
  Report Type: Spontaneous
  Country: US (occurrence: None)
  Receive Date: 20160321
  Receipt Date: 20160321
  Transmission Date: 20160526
  Serious: Yes (Hospitalization)
  Sender: FDA-Public Use
  Company Number: None

PATIENT
  Age: 72 Year
  Sex: Male

DRUGS (2)
  1. PREDNISONE 20 MG [Suspect]
     Active Substance: PREDNISONE
     Route: 048
  2. OMEPRAZOLE 40 MG [Concomitant]
     Active Substance: OMEPRAZOLE
     Route: 048

REACTIONS (5)
  - Urinary tract infection [None]
  - Acute kidney injury [None]
  - Clostridium test positive [None]
  - Sepsis [None]
  - Pneumonia [None]

NARRATIVE: CASE EVENT DATE: 20150514
